FAERS Safety Report 7391226-6 (Version None)
Quarter: 2011Q2

REPORT INFORMATION
  Report Type: 
  Country: None (occurrence: None)
  Receive Date: 20110404
  Receipt Date: 20090915
  Transmission Date: 20111010
  Serious: Yes (Death, Other)
  Sender: FDA-Public Use
  Company Number: US-PFIZER INC-2009215728

PATIENT
  Sex: Female

DRUGS (2)
  1. ZOLOFT [Suspect]
  2. COCAINE [Concomitant]

REACTIONS (2)
  - COMPLETED SUICIDE [None]
  - HOMICIDE [None]
